FAERS Safety Report 4733677-1 (Version None)
Quarter: 2005Q3

REPORT INFORMATION
  Report Type: 
  Country: None (occurrence: None)
  Receive Date: 20050729
  Receipt Date: 20050524
  Transmission Date: 20060218
  Serious: No
  Sender: FDA-Public Use
  Company Number: COT_0083_2005

PATIENT
  Age: 31 Year
  Sex: Male
  Weight: 115.6672 kg

DRUGS (8)
  1. VENTAVIS [Suspect]
     Indication: PULMONARY HYPERTENSION
     Dosage: 2.5 MCG ONCE IH
     Route: 055
     Dates: start: 20050524, end: 20050524
  2. VENTAVIS [Suspect]
     Indication: PULMONARY HYPERTENSION
     Dosage: 5 MCG Q3HR IH
     Route: 055
     Dates: start: 20050524
  3. POTASSIUM CHLORIDE [Concomitant]
  4. METOLAZONE [Concomitant]
  5. SPIRONOLACTONE [Concomitant]
  6. NORVASC [Concomitant]
  7. LASIX [Concomitant]
  8. FLONASE [Concomitant]

REACTIONS (3)
  - COUGH [None]
  - HEADACHE [None]
  - THROAT IRRITATION [None]
